FAERS Safety Report 6162156-2 (Version None)
Quarter: 2009Q2

REPORT INFORMATION
  Report Type: 
  Country: None (occurrence: None)
  Receive Date: 20090421
  Receipt Date: 20090403
  Transmission Date: 20091009
  Serious: Yes (Hospitalization, Disabling, Other)
  Sender: FDA-Public Use
  Company Number: AU-JNJFOC-20080203628

PATIENT
  Sex: Male
  Weight: 70.4 kg

DRUGS (10)
  1. TMC114 [Suspect]
     Route: 048
  2. TMC114 [Suspect]
     Indication: HIV INFECTION
     Route: 048
  3. RITONAVIR [Suspect]
     Route: 048
  4. RITONAVIR [Suspect]
     Indication: HIV INFECTION
     Route: 048
  5. SYMBICORT [Suspect]
     Indication: DRUG USE FOR UNKNOWN INDICATION
     Route: 055
  6. COMBIVIR [Concomitant]
     Indication: HIV INFECTION
     Route: 048
  7. VIREAD [Concomitant]
     Indication: HIV INFECTION
     Route: 048
  8. CORTISONE ACETATE [Concomitant]
     Indication: PROPHYLAXIS
     Route: 048
  9. PERINDOPRIL ERBUMINE [Concomitant]
     Indication: PROPHYLAXIS
     Route: 048
  10. VENTOLIN DS [Concomitant]
     Indication: PROPHYLAXIS
     Route: 055

REACTIONS (1)
  - OSTEONECROSIS [None]
